FAERS Safety Report 22270468 (Version 4)
Quarter: 2023Q2

REPORT INFORMATION
  Report Type: Report from Study
  Country: US (occurrence: US)
  Receive Date: 20230501
  Receipt Date: 20230622
  Transmission Date: 20230721
  Serious: Yes (Other)
  Sender: FDA-Public Use
  Company Number: US-BEH-2023158074

PATIENT
  Age: 64 Year
  Sex: Female
  Weight: 66.667 kg

DRUGS (3)
  1. HIZENTRA [Suspect]
     Active Substance: HUMAN IMMUNOGLOBULIN G
     Indication: Immunodeficiency common variable
     Dosage: UNK
     Route: 058
     Dates: start: 20230414
  2. HIZENTRA [Suspect]
     Active Substance: HUMAN IMMUNOGLOBULIN G
     Indication: Primary immunodeficiency syndrome
     Dosage: 8 GRAM, QW
     Route: 058
     Dates: start: 20230414
  3. HIZENTRA [Suspect]
     Active Substance: HUMAN IMMUNOGLOBULIN G
     Dosage: 8 GRAM, QW
     Route: 058
     Dates: start: 20230505

REACTIONS (7)
  - Syncope [Recovering/Resolving]
  - No adverse event [Unknown]
  - Therapy cessation [Unknown]
  - Fatigue [Unknown]
  - No adverse event [Unknown]
  - Insurance issue [Unknown]
  - Tremor [Unknown]

NARRATIVE: CASE EVENT DATE: 20230416
